FAERS Safety Report 9879505 (Version 1)
Quarter: 2014Q1

REPORT INFORMATION
  Report Type: Spontaneous
  Country: GB (occurrence: GB)
  Receive Date: 20140206
  Receipt Date: 20140206
  Transmission Date: 20141002
  Serious: Yes (Other)
  Sender: FDA-Public Use
  Company Number: GB-INCYTE CORPORATION-2014IN000270

PATIENT
  Sex: Female

DRUGS (2)
  1. JAKAVI [Suspect]
     Dosage: UNK,UNK,UNK
  2. MIRABEGRON [Suspect]
     Dosage: UNK,UNK,UNK

REACTIONS (2)
  - Urinary tract infection [Unknown]
  - Hypersensitivity [Unknown]
